FAERS Safety Report 9479626 (Version 4)
Quarter: 2014Q1

REPORT INFORMATION
  Report Type: Spontaneous
  Country: JP (occurrence: JP)
  Receive Date: 20130827
  Receipt Date: 20140325
  Transmission Date: 20141002
  Serious: Yes (Hospitalization)
  Sender: FDA-Public Use
  Company Number: PHHY2013JP092688

PATIENT
  Age: 26 Year
  Sex: Female
  Weight: 60 kg

DRUGS (15)
  1. GILENYA [Suspect]
     Indication: MULTIPLE SCLEROSIS
     Dosage: 0.5 MG, QD
     Route: 048
     Dates: start: 20130520, end: 20130808
  2. RISPERIDONE [Concomitant]
     Dosage: 3 MG, UNK
     Route: 048
  3. TASMOLIN [Concomitant]
     Dosage: 3 MG, UNK
     Route: 048
  4. HIBERNA [Concomitant]
     Dosage: 75 MG, UNK
     Route: 048
  5. MAGMITT [Concomitant]
     Dosage: 990 MG, UNK
     Route: 048
  6. DEPAKENE-R [Concomitant]
     Dosage: 800 MG, UNK
     Route: 048
  7. SEROQUEL [Concomitant]
     Dosage: 175 MG, UNK
     Route: 048
  8. PANTOSIN [Concomitant]
     Dosage: 6 G, UNK
     Route: 048
  9. ROHYPNOL [Concomitant]
     Dosage: 2 G, UNK
     Route: 048
  10. ZYPREXA [Concomitant]
     Dosage: 5 MG, UNK
     Route: 048
  11. PREDONINE [Concomitant]
     Route: 048
  12. KETAS [Concomitant]
     Dosage: 30 MG, UNK
     Route: 048
  13. ONEALFA [Concomitant]
     Dosage: 1 UG, UNK
     Route: 048
  14. SELBEX [Concomitant]
     Dosage: 150 MG, UNK
     Route: 048
  15. GASTER [Concomitant]
     Dosage: 20 MG, UNK
     Route: 048

REACTIONS (1)
  - Status epilepticus [Recovered/Resolved]
